FAERS Safety Report 5225962-4 (Version None)
Quarter: 2007Q1

REPORT INFORMATION
  Report Type: 
  Country: None (occurrence: None)
  Receive Date: 20070201
  Receipt Date: 20070123
  Transmission Date: 20070707
  Serious: Yes (Hospitalization, Other)
  Sender: FDA-Public Use
  Company Number: US-BAYER-200614853BCC

PATIENT
  Age: 77 Year
  Sex: Female
  Weight: 59 kg

DRUGS (8)
  1. ALEVE [Suspect]
     Indication: ARTHRALGIA
     Dosage: TOTAL DAILY DOSE: 440 MG  UNIT DOSE: 220 MG
     Route: 048
     Dates: start: 20060601, end: 20061117
  2. ASPIRIN [Suspect]
     Indication: DRUG USE FOR UNKNOWN INDICATION
     Dosage: TOTAL DAILY DOSE: 81 MG  UNIT DOSE: 81 MG
     Route: 048
  3. GLYBURIDE [Concomitant]
     Dosage: AS USED: 15/5/5 MG  UNIT DOSE: 5 MG
  4. BENAZEPRIL HYDROCHLORIDE [Concomitant]
     Dosage: TOTAL DAILY DOSE: 20 MG  UNIT DOSE: 20 MG
  5. LOVASTATIN [Concomitant]
     Dosage: TOTAL DAILY DOSE: 40 MG  UNIT DOSE: 40 MG
  6. LEVOTHYROXINE SODIUM [Concomitant]
     Dosage: TOTAL DAILY DOSE: 50 ?G  UNIT DOSE: 50 ?G
  7. METFORMIN HCL [Concomitant]
     Dosage: TOTAL DAILY DOSE: 2000 MG  UNIT DOSE: 500 MG
  8. EVISTA [Concomitant]
     Dosage: TOTAL DAILY DOSE: 60 MG  UNIT DOSE: 60 MG

REACTIONS (9)
  - BLOOD BLISTER [None]
  - CONTUSION [None]
  - FAECES DISCOLOURED [None]
  - FATIGUE [None]
  - HEADACHE [None]
  - OCCULT BLOOD POSITIVE [None]
  - PETECHIAE [None]
  - PLATELET COUNT DECREASED [None]
  - THROMBOCYTOPENIA [None]
